FAERS Safety Report 8494737-5 (Version None)
Quarter: 2012Q3

REPORT INFORMATION
  Report Type: 
  Country: None (occurrence: None)
  Receive Date: 20120709
  Receipt Date: 20120609
  Transmission Date: 20120928
  Serious: Yes (Other)
  Sender: FDA-Public Use
  Company Number: US-BAYER-2012-067355

PATIENT
  Sex: Female

DRUGS (1)
  1. MIRENA [Suspect]
     Dosage: 20 ?G/D, CONT
     Route: 015

REACTIONS (11)
  - ACTIVITIES OF DAILY LIVING IMPAIRED [None]
  - NAUSEA [None]
  - ANXIETY [None]
  - IMPAIRED REASONING [None]
  - DECREASED APPETITE [None]
  - VOMITING [None]
  - DIARRHOEA [None]
  - FEELING ABNORMAL [None]
  - PANIC REACTION [None]
  - MAJOR DEPRESSION [None]
  - PARAESTHESIA [None]
